FAERS Safety Report 10248631 (Version 1)
Quarter: 2014Q2

REPORT INFORMATION
  Report Type: Report from Study
  Country: AU (occurrence: AU)
  Receive Date: 20140620
  Receipt Date: 20140620
  Transmission Date: 20141212
  Serious: Yes (Hospitalization)
  Sender: FDA-Public Use
  Company Number: PHHY2014AU075624

PATIENT
  Sex: Male

DRUGS (2)
  1. CLOZARIL [Suspect]
     Indication: SCHIZOPHRENIA
     Dosage: 175 MG
     Dates: start: 19961113
  2. CLOZARIL [Suspect]
     Dosage: UKN

REACTIONS (2)
  - Aggression [Unknown]
  - Mental impairment [Unknown]
